FAERS Safety Report 8954393 (Version 1)
Quarter: 2012Q4

REPORT INFORMATION
  Report Type: 
  Country: US (occurrence: US)
  Receive Date: 20121210
  Receipt Date: 20121210
  Transmission Date: 20130627
  Serious: Yes (Other)
  Sender: FDA-Public Use
  Company Number: US-AMGEN-USASP2012076788

PATIENT
  Age: 50 Year
  Sex: Female

DRUGS (2)
  1. ENBREL [Suspect]
     Indication: RHEUMATOID ARTHRITIS
     Dosage: UNK UNK, 2 times/wk
     Route: 058
  2. PREDNISONE [Concomitant]
     Dosage: UNK

REACTIONS (13)
  - Traumatic lung injury [Recovered/Resolved]
  - Pulmonary granuloma [Recovered/Resolved]
  - Lung infiltration [Recovered/Resolved]
  - Fatigue [Recovered/Resolved]
  - Skin lesion [Recovered/Resolved]
  - Blood creatinine increased [Unknown]
  - Malaise [Recovered/Resolved]
  - Toxicity to various agents [Unknown]
  - Haematuria [Unknown]
  - Cough [Recovered/Resolved]
  - Hypoxia [Recovered/Resolved]
  - Dyspnoea exertional [Recovered/Resolved]
  - Mycobacterium avium complex infection [Unknown]
